FAERS Safety Report 7079339-X (Version None)
Quarter: 2010Q4

REPORT INFORMATION
  Report Type: 
  Country: None (occurrence: None)
  Receive Date: 20101102
  Receipt Date: 20100903
  Transmission Date: 20110411
  Serious: No
  Sender: FDA-Public Use
  Company Number: A0877246A

PATIENT
  Age: 72 Year
  Sex: Male

DRUGS (11)
  1. RYTHMOL SR [Suspect]
     Indication: ATRIAL FIBRILLATION
     Dosage: 225MG TWICE PER DAY
     Route: 048
     Dates: start: 20000101, end: 20030101
  2. DIGOXIN [Concomitant]
  3. NITROGLYCERIN [Concomitant]
     Route: 048
  4. DIOVAN [Concomitant]
  5. WARFARIN [Concomitant]
  6. ASPIRIN [Concomitant]
  7. COMBIVENT [Concomitant]
  8. SYMBICORT [Concomitant]
  9. SPIRIVA [Concomitant]
  10. ALBUTEROL [Concomitant]
  11. FUROSEMIDE [Concomitant]

REACTIONS (2)
  - DYSPNOEA [None]
  - ERYTHEMA [None]
